FAERS Safety Report 4486562-7 (Version None)
Quarter: 2004Q4

REPORT INFORMATION
  Report Type: 
  Country: None (occurrence: None)
  Receive Date: 20041027
  Receipt Date: 20041019
  Transmission Date: 20050328
  Serious: Yes (Other)
  Sender: FDA-Public Use
  Company Number: US-JNJFOC-20040904360

PATIENT
  Sex: Female

DRUGS (7)
  1. DURAGESIC [Suspect]
     Route: 062
     Dates: start: 20040903, end: 20040921
  2. BEXTRA [Concomitant]
     Indication: ARTHRITIS
     Route: 049
  3. POTASSIUM [Concomitant]
     Route: 049
  4. LEXAPRO [Concomitant]
     Route: 049
  5. XANAX [Concomitant]
     Route: 049
  6. IRON [Concomitant]
     Route: 049
  7. HYDROXYZINE [Concomitant]

REACTIONS (4)
  - DIZZINESS [None]
  - LOSS OF CONSCIOUSNESS [None]
  - PRURITUS [None]
  - PRURITUS GENERALISED [None]
